FAERS Safety Report 5008581-4 (Version None)
Quarter: 2006Q2

REPORT INFORMATION
  Report Type: 
  Country: None (occurrence: None)
  Receive Date: 20060523
  Receipt Date: 20050114
  Transmission Date: 20061013
  Serious: Yes (Hospitalization)
  Sender: FDA-Public Use
  Company Number: US-ROCHE-392707

PATIENT
  Age: 55 Year
  Sex: Male
  Weight: 91.6 kg

DRUGS (10)
  1. PEG-INTERFERON ALFA 2A (RO 25-8310) [Suspect]
     Route: 058
     Dates: start: 20050107, end: 20050112
  2. RIBAVIRIN [Suspect]
     Route: 048
     Dates: start: 20050107, end: 20050112
  3. ATACAND HCT [Concomitant]
     Dosage: TOTAL DAILY DOSE REPORTED AS 16/125 MG.
     Dates: start: 20041201
  4. CLONIDINE [Concomitant]
     Dosage: REPORTED AS CLONIDINE HCL.
     Dates: start: 20050115
  5. HYTRIN [Concomitant]
     Dates: start: 20050107
  6. MONOPRIL [Concomitant]
     Dates: start: 20041201
  7. TOPROL-XL [Concomitant]
     Dates: start: 20041201
  8. LANTUS [Concomitant]
     Dates: start: 20040101
  9. NOVOLOG [Concomitant]
     Dates: start: 20040101
  10. PROCARDIA XL [Concomitant]
     Dates: start: 20041001

REACTIONS (8)
  - ABDOMINAL PAIN [None]
  - BLOOD GLUCOSE INCREASED [None]
  - LETHARGY [None]
  - MENTAL STATUS CHANGES [None]
  - PLATELET COUNT DECREASED [None]
  - RENAL FAILURE ACUTE [None]
  - SOMNOLENCE [None]
  - WHITE BLOOD CELL COUNT DECREASED [None]
